FAERS Safety Report 24042142 (Version 1)
Quarter: 2024Q3

REPORT INFORMATION
  Report Type: Spontaneous
  Country: NO (occurrence: NO)
  Receive Date: 20240702
  Receipt Date: 20240702
  Transmission Date: 20241016
  Serious: Yes (Other)
  Sender: PFIZER
  Company Number: None

PATIENT
  Age: 47 Year
  Sex: Female
  Weight: 83 kg

DRUGS (1)
  1. PANTOPRAZOLE SODIUM [Suspect]
     Active Substance: PANTOPRAZOLE SODIUM
     Indication: Gastric pH decreased
     Dosage: UNK UNK, BID
     Route: 048
     Dates: start: 2003

REACTIONS (13)
  - Cholecystectomy [Unknown]
  - Retching [Unknown]
  - Biliary tract disorder [Unknown]
  - Hypertension [Unknown]
  - Weight increased [Not Recovered/Not Resolved]
  - Dizziness [Unknown]
  - Hiatus hernia [Unknown]
  - Nausea [Not Recovered/Not Resolved]
  - Visual impairment [Unknown]
  - Tinnitus [Unknown]
  - Abdominal discomfort [Unknown]
  - Pain [Unknown]
  - Blood cholesterol increased [Not Recovered/Not Resolved]

NARRATIVE: CASE EVENT DATE: 20030101
